FAERS Safety Report 9365911 (Version 6)
Quarter: 2013Q4

REPORT INFORMATION
  Report Type: Spontaneous
  Country: IE (occurrence: IE)
  Receive Date: 20130625
  Receipt Date: 20131008
  Transmission Date: 20140711
  Serious: Yes (Other)
  Sender: FDA-Public Use
  Company Number: PHFR2013IE003606

PATIENT
  Age: 47 Year
  Sex: Female

DRUGS (2)
  1. CLOZARIL [Suspect]
     Indication: SCHIZOPHRENIA
     Dosage: UNK
     Route: 048
     Dates: start: 20070228, end: 20130622
  2. CLOZARIL [Suspect]
     Indication: OFF LABEL USE
     Dosage: UNK

REACTIONS (5)
  - Breast cancer [Recovering/Resolving]
  - Mental impairment [Recovering/Resolving]
  - White blood cell count increased [Recovering/Resolving]
  - Neutrophil count increased [Recovering/Resolving]
  - Platelet count decreased [Recovered/Resolved]
